FAERS Safety Report 5063109-8 (Version None)
Quarter: 2006Q3

REPORT INFORMATION
  Report Type: 
  Country: None (occurrence: None)
  Receive Date: 20060725
  Receipt Date: 20060725
  Transmission Date: 20061208
  Serious: Yes (Life-Threatening, Hospitalization)
  Sender: FDA-Public Use
  Company Number: None

PATIENT
  Sex: Male

DRUGS (3)
  1. HEPARIN [Suspect]
     Indication: ABDOMINAL DISTENSION
     Dosage: 5000 UNITS ONE TIME IV
     Route: 042
     Dates: start: 20060627, end: 20060627
  2. HEPARIN [Suspect]
     Indication: GALLBLADDER NON-FUNCTIONING
     Dosage: 5000 UNITS ONE TIME IV
     Route: 042
     Dates: start: 20060627, end: 20060627
  3. HEPARIN [Suspect]
     Indication: GASTROINTESTINAL NECROSIS
     Dosage: 5000 UNITS ONE TIME IV
     Route: 042
     Dates: start: 20060627, end: 20060627

REACTIONS (2)
  - HEPARIN-INDUCED THROMBOCYTOPENIA [None]
  - POST PROCEDURAL COMPLICATION [None]
